FAERS Safety Report 10233006 (Version 2)
Quarter: 2014Q2

REPORT INFORMATION
  Report Type: Spontaneous
  Country: US (occurrence: US)
  Receive Date: 20140612
  Receipt Date: 20140617
  Transmission Date: 20141212
  Serious: No
  Sender: FDA-Public Use
  Company Number: US-PFIZER INC-2014156510

PATIENT
  Sex: Female

DRUGS (11)
  1. DIAZEPAM [Suspect]
     Dosage: UNK
  2. IBUPROFEN [Suspect]
     Dosage: UNK
  3. LIDOCAINE HCL [Suspect]
     Dosage: UNK
  4. LYRICA [Suspect]
     Dosage: UNK
  5. AMITRIPTYLINE [Suspect]
     Dosage: UNK
  6. ASA [Suspect]
     Dosage: UNK
  7. DIPHENHYDRAMINE [Suspect]
     Dosage: UNK
  8. HYDROCODONE [Suspect]
     Dosage: UNK
  9. PHENERGAN [Suspect]
     Dosage: UNK
  10. TRAZODONE [Suspect]
     Dosage: UNK
  11. NOVOCAINE [Suspect]
     Dosage: UNK

REACTIONS (1)
  - Drug hypersensitivity [Unknown]
